FAERS Safety Report 24073994 (Version 1)
Quarter: 2024Q3

REPORT INFORMATION
  Report Type: Spontaneous
  Country: US (occurrence: US)
  Receive Date: 20240710
  Receipt Date: 20240710
  Transmission Date: 20241017
  Serious: No
  Sender: PIERRE FABRE MEDICAMENT
  Company Number: US-PFM-2024-02157

PATIENT
  Age: 0 Year
  Sex: Female
  Weight: 6.64 kg

DRUGS (1)
  1. HEMANGEOL [Suspect]
     Active Substance: PROPRANOLOL HYDROCHLORIDE
     Indication: Infantile haemangioma
     Dosage: 2.1 ML, BID (2/DAY)
     Route: 048
     Dates: start: 20240223, end: 20240328

REACTIONS (4)
  - Nausea [Recovered/Resolved]
  - Sleep disorder [Recovered/Resolved]
  - Product administered to patient of inappropriate age [Unknown]
  - Off label use [Unknown]

NARRATIVE: CASE EVENT DATE: 20240223
